FAERS Safety Report 20385237 (Version 1)
Quarter: 2022Q1

REPORT INFORMATION
  Report Type: Other
  Country: None (occurrence: IE)
  Receive Date: 20220127
  Receipt Date: 20220127
  Transmission Date: 20220424
  Serious: Yes (Other)
  Sender: FDA-Public Use
  Company Number: IE-Nova Laboratories Limited-2124357

PATIENT
  Age: 9 Year
  Sex: Male

DRUGS (7)
  1. PURIXAN [Suspect]
     Active Substance: MERCAPTOPURINE
     Indication: B precursor type acute leukaemia
     Dates: start: 2017
  2. PREDNISOLONE [Suspect]
     Active Substance: PREDNISOLONE
     Dates: start: 2017
  3. VINCRISTINE [Suspect]
     Active Substance: VINCRISTINE
     Dates: start: 2017
  4. PEGASPARGASE [Suspect]
     Active Substance: PEGASPARGASE
     Dates: start: 2017
  5. METHOTREXATE [Suspect]
     Active Substance: METHOTREXATE
     Dates: start: 2017
  6. CYTARABINE [Suspect]
     Active Substance: CYTARABINE
     Dates: start: 2017
  7. CYCLOPHOSPHAMIDE [Suspect]
     Active Substance: CYCLOPHOSPHAMIDE
     Route: 042
     Dates: start: 2017

REACTIONS (2)
  - Lentigo [Unknown]
  - Rash [Unknown]

NARRATIVE: CASE EVENT DATE: 20200101
